FAERS Safety Report 8266302-6 (Version None)
Quarter: 2012Q2

REPORT INFORMATION
  Report Type: 
  Country: None (occurrence: None)
  Receive Date: 20120406
  Receipt Date: 20120402
  Transmission Date: 20120825
  Serious: Yes (Other)
  Sender: FDA-Public Use
  Company Number: US-PFIZER INC-2012072846

PATIENT
  Age: 90 Year
  Sex: Male

DRUGS (3)
  1. LATANOPROST [Suspect]
     Dosage: UNK
  2. ALPHAGAN [Concomitant]
     Indication: OPEN ANGLE GLAUCOMA
     Dosage: UNKN, 2X/DAY
  3. LATANOPROST [Suspect]
     Dosage: 1 GTT, 1X/DAY IN BOTH EYES
     Dates: start: 20110101

REACTIONS (3)
  - ASTHENOPIA [None]
  - EYE MOVEMENT DISORDER [None]
  - INCORRECT STORAGE OF DRUG [None]
